FAERS Safety Report 20596778 (Version 1)
Quarter: 2022Q1

REPORT INFORMATION
  Report Type: Report from Study
  Country: US (occurrence: US)
  Receive Date: 20220315
  Receipt Date: 20220315
  Transmission Date: 20220423
  Serious: No
  Sender: FDA-Public Use
  Company Number: US-JNJFOC-20220235860

PATIENT

DRUGS (1)
  1. TREMFYA [Suspect]
     Active Substance: GUSELKUMAB
     Indication: Product used for unknown indication
     Route: 065
     Dates: start: 20211202

REACTIONS (4)
  - Device leakage [Unknown]
  - Injury associated with device [Unknown]
  - Product dose omission issue [Unknown]
  - Accidental exposure to product [Unknown]
